FAERS Safety Report 5771362-8 (Version None)
Quarter: 2008Q2

REPORT INFORMATION
  Report Type: 
  Country: None (occurrence: None)
  Receive Date: 20080613
  Receipt Date: 20080602
  Transmission Date: 20081010
  Serious: Yes (Hospitalization)
  Sender: FDA-Public Use
  Company Number: US-JNJFOC-20080601557

PATIENT
  Sex: Female
  Weight: 86.64 kg

DRUGS (2)
  1. ORTHO EVRA [Suspect]
     Indication: CONTRACEPTION
  2. LOTENSIN [Concomitant]

REACTIONS (2)
  - ISCHAEMIC CEREBRAL INFARCTION [None]
  - THROMBOTIC THROMBOCYTOPENIC PURPURA [None]
